FAERS Safety Report 4617034-4 (Version None)
Quarter: 2005Q1

REPORT INFORMATION
  Report Type: 
  Country: None (occurrence: None)
  Receive Date: 20050323
  Receipt Date: 20050316
  Transmission Date: 20050727
  Serious: Yes (Hospitalization, Other)
  Sender: FDA-Public Use
  Company Number: PHBS2005PL03933

PATIENT
  Age: 23 Year
  Sex: Female

DRUGS (2)
  1. BROMOCRIPTINE MESYLATE [Suspect]
     Indication: HYPERPROLACTINAEMIA
     Dosage: 5 MG/DAY
     Route: 065
     Dates: start: 19970401
  2. BROMOCRIPTINE MESYLATE [Suspect]
     Dosage: 2.5 MG/DAY
     Route: 065

REACTIONS (4)
  - CAESAREAN SECTION [None]
  - CERVICAL INCOMPETENCE [None]
  - DRUG EXPOSURE DURING PREGNANCY [None]
  - NORMAL NEWBORN [None]
